FAERS Safety Report 10014456 (Version 1)
Quarter: 2014Q1

REPORT INFORMATION
  Report Type: Spontaneous
  Country: US (occurrence: US)
  Receive Date: 20140317
  Receipt Date: 20140317
  Transmission Date: 20141002
  Serious: No
  Sender: FDA-Public Use
  Company Number: US-BAYER-2014-035061

PATIENT
  Sex: Female

DRUGS (1)
  1. CLIMARA PRO [Suspect]
     Indication: HOT FLUSH
     Route: 062

REACTIONS (4)
  - Application site hypersensitivity [Recovered/Resolved]
  - Application site erythema [Recovered/Resolved]
  - Application site erythema [Recovered/Resolved]
  - Application site pruritus [Recovered/Resolved]
